FAERS Safety Report 4607094-9 (Version None)
Quarter: 2005Q1

REPORT INFORMATION
  Report Type: 
  Country: None (occurrence: None)
  Receive Date: 20050314
  Receipt Date: 20050217
  Transmission Date: 20050727
  Serious: Yes (Other)
  Sender: FDA-Public Use
  Company Number: HQWYE549624FEB05

PATIENT
  Sex: Female
  Weight: 62 kg

DRUGS (5)
  1. ENBREL [Suspect]
     Indication: RHEUMATOID ARTHRITIS
     Route: 058
     Dates: start: 20040913
  2. MEDROL [Concomitant]
     Indication: RHEUMATOID ARTHRITIS
     Route: 048
  3. CELEBREX [Concomitant]
     Indication: RHEUMATOID ARTHRITIS
     Dosage: 1 - 2 TABLET DAILY
  4. SALAZOPYRIN [Concomitant]
     Indication: RHEUMATOID ARTHRITIS
     Dosage: 3 G/D
  5. CITALOPRAM HYDROBROMIDE [Concomitant]
     Indication: DEPRESSION
     Route: 048

REACTIONS (5)
  - ABNORMAL FAECES [None]
  - CONDITION AGGRAVATED [None]
  - ENTEROCOLITIS [None]
  - ENTEROCOLITIS HAEMORRHAGIC [None]
  - PROCTOCOLITIS [None]
